FAERS Safety Report 6238297-8 (Version None)
Quarter: 2009Q2

REPORT INFORMATION
  Report Type: 
  Country: None (occurrence: None)
  Receive Date: 20090617
  Receipt Date: 20090617
  Transmission Date: 20091009
  Serious: No
  Sender: FDA-Public Use
  Company Number: None

PATIENT
  Age: 53 Year
  Sex: Female
  Weight: 92.5338 kg

DRUGS (1)
  1. TARGET ALL DAY ALLERGY RELIEF 10 MG CERTRIZINE HYDROCHLORIDE [Suspect]
     Dosage: 1 1/DAY PO
     Route: 048
     Dates: start: 20090501, end: 20090605

REACTIONS (1)
  - RASH [None]
